FAERS Safety Report 20892414 (Version 1)
Quarter: 2022Q2

REPORT INFORMATION
  Report Type: Report from Study
  Country: CA (occurrence: CA)
  Receive Date: 20220531
  Receipt Date: 20220531
  Transmission Date: 20220721
  Serious: Yes (Other)
  Sender: FDA-Public Use
  Company Number: CA-AUROBINDO-AUR-APL-2022-019046

PATIENT

DRUGS (3)
  1. ESCITALOPRAM [Suspect]
     Active Substance: ESCITALOPRAM OXALATE
     Indication: Parkinsonism
     Dosage: UNK
     Route: 065
  2. TRAZODONE [Suspect]
     Active Substance: TRAZODONE HYDROCHLORIDE
     Indication: Parkinsonism
     Dosage: UNK
     Route: 065
  3. RASAGILINE [Suspect]
     Active Substance: RASAGILINE
     Indication: Parkinsonism
     Dosage: UNK
     Route: 065

REACTIONS (1)
  - Serotonin syndrome [Unknown]
